FAERS Safety Report 19549768 (Version 1)
Quarter: 2021Q3

REPORT INFORMATION
  Report Type: Spontaneous
  Country: US (occurrence: US)
  Receive Date: 20210715
  Receipt Date: 20210715
  Transmission Date: 20211014
  Serious: No
  Sender: FDA-Public Use
  Company Number: None

PATIENT
  Age: 16 Year
  Sex: Female
  Weight: 56.7 kg

DRUGS (6)
  1. HYDROXYZINE [Concomitant]
     Active Substance: HYDROXYZINE HYDROCHLORIDE
  2. MINOCYCLINE [Suspect]
     Active Substance: MINOCYCLINE HYDROCHLORIDE
     Indication: ACNE
     Dosage: ?          QUANTITY:1 DF DOSAGE FORM;?
     Route: 048
     Dates: start: 20210610, end: 20210630
  3. IBUPROFEN. [Concomitant]
     Active Substance: IBUPROFEN
  4. PREDNISONE. [Concomitant]
     Active Substance: PREDNISONE
  5. BENADRYL [Concomitant]
     Active Substance: DIPHENHYDRAMINE HYDROCHLORIDE
  6. ACETEMENOPHIN [Concomitant]

REACTIONS (5)
  - Joint swelling [None]
  - Serum sickness [None]
  - Urticaria [None]
  - Arthralgia [None]
  - Pyrexia [None]

NARRATIVE: CASE EVENT DATE: 20210629
